FAERS Safety Report 22673849 (Version 4)
Quarter: 2024Q4

REPORT INFORMATION
  Report Type: Spontaneous
  Country: GB (occurrence: GB)
  Receive Date: 20230705
  Receipt Date: 20241127
  Transmission Date: 20250115
  Serious: Yes (Other)
  Sender: VERTEX
  Company Number: GB-VERTEX PHARMACEUTICALS-2022-016772

PATIENT
  Age: 35 Year
  Sex: Female

DRUGS (1)
  1. ELEXACAFTOR\IVACAFTOR\TEZACAFTOR [Suspect]
     Active Substance: ELEXACAFTOR\IVACAFTOR\TEZACAFTOR
     Indication: Cystic fibrosis
     Dosage: UNK FREQ
     Route: 048

REACTIONS (5)
  - Hepatic necrosis [Unknown]
  - Drug-induced liver injury [Unknown]
  - Blood bilirubin abnormal [Recovered/Resolved]
  - Jaundice [Unknown]
  - Alanine aminotransferase increased [Recovered/Resolved]
